FAERS Safety Report 14403358 (Version 1)
Quarter: 2018Q1

REPORT INFORMATION
  Report Type: Spontaneous
  Country: RO (occurrence: RO)
  Receive Date: 20180117
  Receipt Date: 20180117
  Transmission Date: 20180509
  Serious: Yes (Death)
  Sender: FDA-Public Use
  Company Number: RO-SA-2018SA008661

PATIENT
  Age: 40 Year
  Sex: Male
  Weight: 70 kg

DRUGS (1)
  1. MYOZYME [Suspect]
     Active Substance: ALGLUCOSIDASE ALFA
     Indication: GLYCOGEN STORAGE DISEASE TYPE II
     Dosage: 28 UNITS
     Route: 041
     Dates: start: 20161229, end: 20171221

REACTIONS (2)
  - Respiratory acidosis [Fatal]
  - Arrhythmia [Fatal]

NARRATIVE: CASE EVENT DATE: 20171227
